FAERS Safety Report 16713233 (Version 1)
Quarter: 2019Q3

REPORT INFORMATION
  Report Type: Other
  Country: CN (occurrence: CN)
  Receive Date: 20190817
  Receipt Date: 20190817
  Transmission Date: 20191004
  Serious: Yes (Other)
  Sender: FDA-Public Use
  Company Number: CN-JIANGSU HENGRUI MEDICINE CO., LTD.-2073291

PATIENT
  Age: 33 Year
  Sex: Male
  Weight: 60 kg

DRUGS (7)
  1. IRINOTECAN HYDROCHLORIDE INJECTION, 20 MG/ML (2 ML AND 5 ML VIALS) (AN [Suspect]
     Active Substance: IRINOTECAN HYDROCHLORIDE
     Indication: COLON CANCER
     Route: 041
     Dates: start: 20190801, end: 20190801
  2. GLUCOSE INJECTION [Concomitant]
     Active Substance: DEXTROSE
     Route: 041
     Dates: start: 20190801, end: 20190801
  3. FLUOROURACIL INJECTION [Concomitant]
     Active Substance: FLUOROURACIL
     Route: 040
     Dates: start: 20190801, end: 20190801
  4. SODIUM CHLORIDE INJECTION [Concomitant]
     Active Substance: SODIUM CHLORIDE
     Route: 040
     Dates: start: 20190801, end: 20190801
  5. FLUOROURACIL INJECTION [Concomitant]
     Active Substance: FLUOROURACIL
     Route: 040
     Dates: start: 20190801, end: 20190801
  6. OXALIPLATIN FOR INJECTION [Suspect]
     Active Substance: OXALIPLATIN
     Route: 040
     Dates: start: 20190801, end: 20190801
  7. CALCIUM LEVOFOLINATE FOR INJECTION [Concomitant]
     Route: 040
     Dates: start: 20190801, end: 20190801

REACTIONS (2)
  - Hypokalaemia [Recovered/Resolved]
  - Vomiting [Recovered/Resolved]

NARRATIVE: CASE EVENT DATE: 20190801
